FAERS Safety Report 15369734 (Version 1)
Quarter: 2018Q3

REPORT INFORMATION
  Report Type: Spontaneous
  Country: US (occurrence: US)
  Receive Date: 20180911
  Receipt Date: 20180911
  Transmission Date: 20181010
  Serious: No
  Sender: FDA-Public Use
  Company Number: US-009507513-1808USA011359

PATIENT
  Age: 2 Year
  Sex: Female

DRUGS (2)
  1. SINGULAIR [Suspect]
     Active Substance: MONTELUKAST SODIUM
     Indication: TONSILLAR HYPERTROPHY
     Route: 048
  2. MOMETASONE FUROATE. [Concomitant]
     Active Substance: MOMETASONE FUROATE

REACTIONS (3)
  - Dysphemia [Recovered/Resolved]
  - Nervousness [Recovered/Resolved]
  - Speech disorder [Recovered/Resolved]
